FAERS Safety Report 4391481-0 (Version None)
Quarter: 2004Q3

REPORT INFORMATION
  Report Type: 
  Country: None (occurrence: None)
  Receive Date: 20040701
  Receipt Date: 20040616
  Transmission Date: 20050211
  Serious: Yes (Death)
  Sender: FDA-Public Use
  Company Number: A03200401180

PATIENT
  Age: 30 Year
  Sex: Female
  Weight: 51.2565 kg

DRUGS (1)
  1. DEMEROL [Suspect]

REACTIONS (4)
  - ACCIDENT [None]
  - DRUG TOXICITY [None]
  - PLEURAL EFFUSION [None]
  - PULMONARY OEDEMA [None]
